FAERS Safety Report 8784273 (Version 1)
Quarter: 2012Q4

REPORT INFORMATION
  Report Type: Spontaneous
  Country: US (occurrence: None)
  Receive Date: 20120905
  Receipt Date: 20120905
  Transmission Date: 20130627
  Serious: Yes (Life-Threatening)
  Sender: FDA-Public Use
  Company Number: None

PATIENT
  Age: 59 Year
  Sex: Male
  Weight: 89.81 kg

DRUGS (1)
  1. PIOGLITAZONE [Suspect]
     Indication: DIABETES
     Dosage: approximately 12 years
     Route: 048

REACTIONS (1)
  - Bladder cancer [None]
